FAERS Safety Report 5569578-9 (Version None)
Quarter: 2007Q4

REPORT INFORMATION
  Report Type: 
  Country: None (occurrence: None)
  Receive Date: 20071220
  Receipt Date: 20071210
  Transmission Date: 20080405
  Serious: Yes (Other)
  Sender: FDA-Public Use
  Company Number: SE-RANBAXY-2007RR-08638

PATIENT

DRUGS (6)
  1. SERTRALINE [Suspect]
     Indication: DEPRESSION
     Dosage: 100 MG, QD
     Route: 048
  2. MIANSERIN [Suspect]
     Indication: DEPRESSION
     Dosage: 30 MG, QD
     Dates: start: 20001101, end: 20001201
  3. LEVOTHYROXINE SODIUM [Concomitant]
     Indication: AUTOIMMUNE THYROIDITIS
     Dosage: 0.025 MG, QD
     Dates: start: 20000501
  4. LEVOTHYROXINE SODIUM [Concomitant]
     Dosage: 0.075 MG, QD
  5. LEVOTHYROXINE SODIUM [Concomitant]
     Dosage: 0.1 MG, QD
     Dates: start: 20001201
  6. LEVOTHYROXINE SODIUM [Concomitant]
     Dosage: 0.15 MG, QD
     Dates: start: 20010401

REACTIONS (2)
  - DRUG INTERACTION [None]
  - HYPOTHYROIDISM [None]
